FAERS Safety Report 4785666-9 (Version None)
Quarter: 2005Q3

REPORT INFORMATION
  Report Type: 
  Country: None (occurrence: None)
  Receive Date: 20050929
  Receipt Date: 20050920
  Transmission Date: 20060218
  Serious: Yes (Death)
  Sender: FDA-Public Use
  Company Number: 143212USA

PATIENT
  Age: 77 Year
  Sex: Female

DRUGS (2)
  1. PROPOFOL [Suspect]
     Indication: SEDATION
     Dosage: NI
     Dates: start: 20050522, end: 20050528
  2. AMIODARONE [Concomitant]

REACTIONS (5)
  - BLOOD BILIRUBIN INCREASED [None]
  - GENERALISED OEDEMA [None]
  - MULTI-ORGAN FAILURE [None]
  - PNEUMONIA [None]
  - RESPIRATORY FAILURE [None]
